FAERS Safety Report 10220961 (Version 1)
Quarter: 2014Q2

REPORT INFORMATION
  Report Type: Spontaneous
  Country: US (occurrence: US)
  Receive Date: 20140606
  Receipt Date: 20140606
  Transmission Date: 20141212
  Serious: Yes (Hospitalization, Other)
  Sender: FDA-Public Use
  Company Number: US-ROCHE-1409735

PATIENT
  Age: 58 Year
  Sex: Male
  Weight: 72.64 kg

DRUGS (8)
  1. ACTEMRA [Suspect]
     Indication: RHEUMATOID ARTHRITIS
     Route: 065
  2. HUMIRA [Suspect]
     Indication: RHEUMATOID ARTHRITIS
     Route: 058
     Dates: start: 201305
  3. HUMIRA [Suspect]
     Route: 058
     Dates: start: 20140430
  4. ENBREL [Suspect]
     Indication: RHEUMATOID ARTHRITIS
     Route: 065
     Dates: start: 201309
  5. CELEBREX [Suspect]
     Indication: RHEUMATOID ARTHRITIS
     Route: 065
  6. METHOTREXATE [Suspect]
     Indication: RHEUMATOID ARTHRITIS
     Route: 065
  7. FOLIC ACID [Suspect]
     Indication: PRODUCT USED FOR UNKNOWN INDICATION
     Route: 065
  8. METFORMIN [Concomitant]
     Indication: PRODUCT USED FOR UNKNOWN INDICATION
     Route: 065

REACTIONS (8)
  - Arrhythmia [Recovered/Resolved]
  - Pleural effusion [Recovered/Resolved]
  - Fatigue [Not Recovered/Not Resolved]
  - Loss of consciousness [Recovered/Resolved]
  - Pericardial effusion [Recovered/Resolved]
  - Cardiac infection [Recovered/Resolved]
  - Cardiac arrest [Recovered/Resolved]
  - Arthralgia [Not Recovered/Not Resolved]
